FAERS Safety Report 12718626 (Version 9)
Quarter: 2018Q4

REPORT INFORMATION
  Report Type: Report from Study
  Country: PT (occurrence: PT)
  Receive Date: 20160906
  Receipt Date: 20181213
  Transmission Date: 20190204
  Serious: Yes (Death, Hospitalization, Other)
  Sender: FDA-Public Use
  Company Number: PT-GILEAD-2016-0231299

PATIENT
  Age: 63 Year
  Sex: Male

DRUGS (22)
  1. RITUXIMAB. [Suspect]
     Active Substance: RITUXIMAB
     Dosage: 500 MG/M2, UNK
     Route: 065
     Dates: start: 201602
  2. OSELTAMIVIR [Suspect]
     Active Substance: OSELTAMIVIR
     Dosage: UNK
     Route: 065
  3. BACTRIM [Concomitant]
     Active Substance: SULFAMETHOXAZOLE\TRIMETHOPRIM
     Dosage: UNK
  4. IDELALISIB [Suspect]
     Active Substance: IDELALISIB
     Dosage: 150 UNK
     Route: 048
     Dates: start: 20160201, end: 20160801
  5. OSELTAMIVIR [Suspect]
     Active Substance: OSELTAMIVIR
     Indication: PRODUCT USED FOR UNKNOWN INDICATION
     Dosage: UNK
     Route: 065
  6. FLUCONAZOLE. [Concomitant]
     Active Substance: FLUCONAZOLE
  7. PNEUMOCOCCAL VACCINE POLYVALENT NOS [Concomitant]
     Active Substance: PNEUMOCOCCAL VACCINE POLYVALENT
     Dosage: UNK
     Dates: start: 201710
  8. FLUCONAZOLE. [Concomitant]
     Active Substance: FLUCONAZOLE
     Indication: PRODUCT USED FOR UNKNOWN INDICATION
     Dosage: UNK
     Route: 065
  9. INDERAL [Concomitant]
     Active Substance: PROPRANOLOL HYDROCHLORIDE
  10. INFLUENZA VACCINE [Concomitant]
     Active Substance: INFLUENZA VIRUS VACCINE
     Dosage: UNK
     Dates: start: 201710
  11. RITUXIMAB. [Suspect]
     Active Substance: RITUXIMAB
     Indication: CHRONIC LYMPHOCYTIC LEUKAEMIA
     Dosage: 375 MG/M2, UNK
     Route: 065
     Dates: start: 201510, end: 201510
  12. BACTRIM [Concomitant]
     Active Substance: SULFAMETHOXAZOLE\TRIMETHOPRIM
     Route: 065
  13. ACYCLOVIR                          /00587301/ [Concomitant]
     Active Substance: ACYCLOVIR
     Indication: PROPHYLAXIS
  14. IDELALISIB [Suspect]
     Active Substance: IDELALISIB
     Dosage: 150 UNK
     Route: 048
     Dates: start: 20151012, end: 201601
  15. RITUXIMAB. [Suspect]
     Active Substance: RITUXIMAB
     Dosage: 500 MG/M2, UNK
     Route: 065
     Dates: end: 201601
  16. BACTRIM [Concomitant]
     Active Substance: SULFAMETHOXAZOLE\TRIMETHOPRIM
     Indication: PROPHYLAXIS
     Dosage: UNK
     Dates: start: 201602
  17. INDERAL [Concomitant]
     Active Substance: PROPRANOLOL HYDROCHLORIDE
     Indication: PRODUCT USED FOR UNKNOWN INDICATION
     Dosage: UNK
     Route: 065
  18. PIPERACILLIN/TAZOBACTAM [Concomitant]
     Active Substance: PIPERACILLIN SODIUM\TAZOBACTAM SODIUM
  19. AZITHROMYCIN ANHYDROUS. [Concomitant]
     Active Substance: AZITHROMYCIN ANHYDROUS
  20. IDELALISIB [Suspect]
     Active Substance: IDELALISIB
     Indication: CHRONIC LYMPHOCYTIC LEUKAEMIA
     Dosage: 100 MG, BID
     Route: 048
     Dates: start: 20161001, end: 20180223
  21. PIPERACILLIN/TAZOBACTAM [Concomitant]
     Active Substance: PIPERACILLIN SODIUM\TAZOBACTAM SODIUM
  22. AZITHROMYCIN ANHYDROUS. [Concomitant]
     Active Substance: AZITHROMYCIN ANHYDROUS

REACTIONS (15)
  - Multiple organ dysfunction syndrome [Fatal]
  - Asthenia [Unknown]
  - Acute kidney injury [Unknown]
  - Renal failure [Recovered/Resolved]
  - Infection [Unknown]
  - Respiratory failure [Unknown]
  - Pyrexia [Unknown]
  - Weight decreased [Recovered/Resolved]
  - Electrolyte imbalance [Unknown]
  - Diarrhoea [Recovered/Resolved]
  - Respiratory failure [Recovered/Resolved]
  - Decreased appetite [Unknown]
  - Respiratory tract infection [Recovered/Resolved]
  - Dehydration [Unknown]
  - Pyrexia [Recovered/Resolved]

NARRATIVE: CASE EVENT DATE: 20160101
